FAERS Safety Report 5001766-2 (Version None)
Quarter: 2006Q2

REPORT INFORMATION
  Report Type: 
  Country: None (occurrence: None)
  Receive Date: 20060512
  Receipt Date: 20060512
  Transmission Date: 20061013
  Serious: Yes (Death)
  Sender: FDA-Public Use
  Company Number: None

PATIENT
  Age: 15 Year
  Sex: Male
  Weight: 81.6475 kg

DRUGS (1)
  1. OXYCONTIN [Suspect]
     Indication: PROCEDURAL PAIN
     Dosage: #30   1-3 Q6 HRS   ORAL (047)
     Route: 048
     Dates: start: 20050224, end: 20050226

REACTIONS (1)
  - PAIN [None]
